FAERS Safety Report 18957971 (Version 1)
Quarter: 2021Q1

REPORT INFORMATION
  Report Type: Spontaneous
  Country: US (occurrence: US)
  Receive Date: 20210302
  Receipt Date: 20210302
  Transmission Date: 20210420
  Serious: Yes (Other)
  Sender: FDA-Public Use
  Company Number: US-PFIZER INC-2019322139

PATIENT
  Age: 64 Year
  Sex: Female

DRUGS (1)
  1. LYRICA [Suspect]
     Active Substance: PREGABALIN
     Indication: RHEUMATOID ARTHRITIS
     Dosage: 300 MG, DAILY (TAKE 1 CAPSULE IN THE MORNING, 1 CAPSULE AT LUNCH, AND 2 CAPSULE IN THE EVENING)
     Route: 048

REACTIONS (3)
  - Off label use [Unknown]
  - Neoplasm malignant [Unknown]
  - Bradykinesia [Unknown]
